FAERS Safety Report 19509444 (Version 5)
Quarter: 2021Q3

REPORT INFORMATION
  Report Type: Report from Study
  Country: US (occurrence: US)
  Receive Date: 20210708
  Receipt Date: 20210810
  Transmission Date: 20211014
  Serious: Yes (Congenital Anomaly)
  Sender: FDA-Public Use
  Company Number: US-TEVA-2021-US-1925929

PATIENT
  Sex: Female

DRUGS (6)
  1. TIVICAY [Suspect]
     Active Substance: DOLUTEGRAVIR SODIUM
     Route: 064
     Dates: start: 20210402
  2. DESCOVY [Suspect]
     Active Substance: EMTRICITABINE\TENOFOVIR ALAFENAMIDE FUMARATE
     Indication: HIV INFECTION
     Route: 064
     Dates: start: 20210408
  3. TIVICAY [Suspect]
     Active Substance: DOLUTEGRAVIR SODIUM
     Indication: HIV INFECTION
     Route: 064
     Dates: end: 20210302
  4. TRIMETHOPRIM/SULFAMETHOXAZOLE [Concomitant]
     Active Substance: SULFAMETHOXAZOLE\TRIMETHOPRIM
  5. TENOFOVIR DISOPROXIL FUMARATE+EMTRICITABINE GENERIC?TEVA [Suspect]
     Active Substance: EMTRICITABINE\TENOFOVIR DISOPROXIL FUMARATE
     Indication: HIV INFECTION
     Route: 064
     Dates: end: 20210408
  6. FOLATE SUPPLEMENT [Concomitant]

REACTIONS (3)
  - Foetal exposure during pregnancy [Unknown]
  - Congenital naevus [Unknown]
  - Congenital nipple anomaly [Unknown]
